FAERS Safety Report 11503193 (Version 1)
Quarter: 2015Q3

REPORT INFORMATION
  Report Type: Spontaneous
  Country: US (occurrence: US)
  Receive Date: 20150914
  Receipt Date: 20150914
  Transmission Date: 20151125
  Serious: No
  Sender: FDA-Public Use
  Company Number: US-ASTELLAS-2015US023202

PATIENT
  Age: 60 Year
  Sex: Male

DRUGS (1)
  1. XTANDI [Suspect]
     Active Substance: ENZALUTAMIDE
     Indication: NEOPLASM PROSTATE
     Dosage: 160 MG, ONCE DAILY, 4 CAPSULES
     Route: 048
     Dates: start: 20150508

REACTIONS (3)
  - Hot flush [Unknown]
  - Muscle spasms [Unknown]
  - Flushing [Unknown]

NARRATIVE: CASE EVENT DATE: 20150508
